FAERS Safety Report 25358911 (Version 6)
Quarter: 2025Q4

REPORT INFORMATION
  Report Type: Spontaneous
  Country: GB (occurrence: GB)
  Receive Date: 20250526
  Receipt Date: 20251028
  Transmission Date: 20260118
  Serious: Yes (Other)
  Sender: MYLAN
  Company Number: GB-MYLANLABS-2025M1041049

PATIENT
  Age: 42 Year
  Sex: Male

DRUGS (3)
  1. CLOZARIL [Suspect]
     Active Substance: CLOZAPINE
     Indication: Schizoaffective disorder
     Dosage: UNK
  2. CLOZARIL [Suspect]
     Active Substance: CLOZAPINE
     Indication: Borderline personality disorder
     Dosage: UNK (PROPOSED DATE OF COMMENCEMENT 09-MAY-2025)
  3. CLOZARIL [Suspect]
     Active Substance: CLOZAPINE
     Indication: Antisocial personality disorder
     Dosage: UNK

REACTIONS (4)
  - Thrombocytopenia [Not Recovered/Not Resolved]
  - Eosinophilia [Recovering/Resolving]
  - Malaise [Unknown]
  - Off label use [Unknown]

NARRATIVE: CASE EVENT DATE: 20250908
